FAERS Safety Report 21417041 (Version 2)
Quarter: 2022Q4

REPORT INFORMATION
  Report Type: Spontaneous
  Country: US (occurrence: US)
  Receive Date: 20221006
  Receipt Date: 20221104
  Transmission Date: 20230113
  Serious: No
  Sender: FDA-Public Use
  Company Number: US-PFIZER INC-202201205965

PATIENT
  Age: 70 Year
  Sex: Male
  Weight: 97.959 kg

DRUGS (4)
  1. PAXLOVID [Suspect]
     Active Substance: NIRMATRELVIR\RITONAVIR
     Indication: COVID-19 treatment
     Dosage: 2X/DAY (1 PILL PACK REGULAR DOSE)
     Dates: start: 20220831, end: 20220904
  2. PANTOPRAZOLE [Concomitant]
     Active Substance: PANTOPRAZOLE
     Dosage: 1X/DAY (40 QD)
  3. CELECOXIB [Concomitant]
     Active Substance: CELECOXIB
     Dosage: 2X/DAY (200 BID)
  4. CLARITHROMYCIN [Concomitant]
     Active Substance: CLARITHROMYCIN
     Dosage: 1X/DAY (10 QD)

REACTIONS (1)
  - Dysgeusia [Recovered/Resolved]

NARRATIVE: CASE EVENT DATE: 20220831
